FAERS Safety Report 4524420-X (Version None)
Quarter: 2004Q4

REPORT INFORMATION
  Report Type: 
  Country: None (occurrence: None)
  Receive Date: 20041116
  Receipt Date: 20040323
  Transmission Date: 20050328
  Serious: Yes (Hospitalization)
  Sender: FDA-Public Use
  Company Number: US-JNJFOC-20040807783

PATIENT
  Age: 57 Year
  Sex: Male
  Weight: 77 kg

DRUGS (10)
  1. MOTRIN [Suspect]
  2. COUMADIN [Suspect]
     Dosage: 1 MG, 1 IN 1 DAY, ORAL
     Route: 048
     Dates: end: 20030101
  3. CAMPTOSAR [Suspect]
     Indication: OESOPHAGEAL CARCINOMA
     Dosage: CYCLIC
     Dates: end: 20030326
  4. CISPLATIN [Suspect]
     Indication: OESOPHAGEAL CARCINOMA
     Dosage: CYCLIC
     Dates: end: 20030326
  5. FLUOROURACIL [Suspect]
     Indication: OESOPHAGEAL CARCINOMA
     Dosage: CYCLIC
     Dates: end: 20030326
  6. ZANTAC [Concomitant]
  7. OXYCODONE (OXYCODONE) [Concomitant]
  8. COMPAZINE [Concomitant]
  9. DURAGESIC [Concomitant]
  10. MIRALAX [Concomitant]

REACTIONS (1)
  - UPPER GASTROINTESTINAL HAEMORRHAGE [None]
